FAERS Safety Report 10239451 (Version 1)
Quarter: 2014Q2

REPORT INFORMATION
  Report Type: Spontaneous
  Country: US (occurrence: US)
  Receive Date: 20140616
  Receipt Date: 20140616
  Transmission Date: 20141212
  Serious: No
  Sender: FDA-Public Use
  Company Number: US-PFIZER INC-2014164132

PATIENT
  Age: 4 Year
  Sex: Male
  Weight: 21.77 kg

DRUGS (1)
  1. CHILDREN^S MOTRIN [Suspect]
     Indication: PYREXIA
     Dosage: UNK
     Dates: start: 20140429, end: 20140429

REACTIONS (1)
  - Vomiting [Recovered/Resolved]
